FAERS Safety Report 20206750 (Version 1)
Quarter: 2021Q4

REPORT INFORMATION
  Report Type: Spontaneous
  Country: US (occurrence: None)
  Receive Date: 20211219
  Receipt Date: 20211219
  Transmission Date: 20220303
  Serious: Yes (Hospitalization)
  Sender: FDA-Public Use
  Company Number: None

PATIENT
  Age: 5 Year
  Sex: Male
  Weight: 20.4 kg

DRUGS (1)
  1. BAMLANIVIMAB\ETESEVIMAB [Suspect]
     Active Substance: BAMLANIVIMAB\ETESEVIMAB
     Indication: COVID-19
     Dates: start: 20211218, end: 20211218

REACTIONS (6)
  - Infusion related reaction [None]
  - Cough [None]
  - Retching [None]
  - Pallor [None]
  - Skin discolouration [None]
  - Oxygen saturation decreased [None]

NARRATIVE: CASE EVENT DATE: 20211218
